FAERS Safety Report 10245050 (Version 2)
Quarter: 2014Q2

REPORT INFORMATION
  Report Type: Spontaneous
  Country: US (occurrence: US)
  Receive Date: 20140618
  Receipt Date: 20140618
  Transmission Date: 20141212
  Serious: No
  Sender: FDA-Public Use
  Company Number: US-GALDERMA-US14000981

PATIENT
  Age: 62 Year
  Sex: Female

DRUGS (15)
  1. MIRVASO (BRIMONIDINE) TOPICAL GEL, 0.33% [Suspect]
     Indication: FLUSHING
     Dosage: 0.33%
     Route: 061
     Dates: start: 201311, end: 20140211
  2. MIRVASO (BRIMONIDINE) TOPICAL GEL, 0.33% [Suspect]
     Indication: ERYTHROMELALGIA
     Dates: start: 201402, end: 201402
  3. LIDODERM (LIDOCAINE) PATCH 5% [Concomitant]
     Indication: FLUSHING
     Dosage: 5%
     Route: 061
     Dates: start: 201306
  4. ESTRADIOL W/NORESTHISTERONE [Concomitant]
     Indication: FLUSHING
     Dosage: 1 MG
     Route: 048
     Dates: start: 201309
  5. COMPOUNDED 120 GM MIDODRINE HCL 0.2% CREAM [Concomitant]
     Indication: FLUSHING
     Dosage: 0.2%
     Route: 061
     Dates: start: 201307
  6. COMPOUNDED 120 GM MIDODRINE HCL 0.2% CREAM [Concomitant]
     Indication: FEELING HOT
  7. COMPOUNDED 120 GN AMIT 2% CREAM [Concomitant]
     Indication: FLUSHING
     Dosage: 2%
     Route: 061
     Dates: start: 201307
  8. COMPOUNDED 120 GN AMIT 2% CREAM [Concomitant]
     Indication: FEELING HOT
  9. MULTIVITAMIN [Concomitant]
     Route: 048
  10. CETAPHIL GENTLE SKIN CLEANSER [Concomitant]
     Indication: THERAPEUTIC SKIN CARE TOPICAL
     Route: 061
  11. LORATADINE [Concomitant]
  12. AVEENO ULTRA CALMING MOISTURIZER [Concomitant]
  13. AVEENO ULTRA CALMING NIGHT CREAM [Concomitant]
  14. VALACYCLOVIR [Concomitant]
     Dosage: 250 MG
     Route: 048
  15. ATORVASTATIN [Concomitant]
     Dosage: 40 MG
     Route: 048

REACTIONS (5)
  - Rebound effect [Recovered/Resolved]
  - Feeling hot [Recovered/Resolved]
  - Flushing [Recovered/Resolved]
  - Skin burning sensation [Recovered/Resolved]
  - Off label use [Recovered/Resolved]
